FAERS Safety Report 12177869 (Version 1)
Quarter: 2016Q1

REPORT INFORMATION
  Report Type: Spontaneous
  Country: US (occurrence: None)
  Receive Date: 20160314
  Receipt Date: 20160314
  Transmission Date: 20160526
  Serious: No
  Sender: FDA-Public Use
  Company Number: None

PATIENT

DRUGS (1)
  1. 50% DEXTROSE 0.5G/ML HOSPIRA 1 [Suspect]
     Active Substance: DEXTROSE
     Indication: HYPOGLYCAEMIA
     Route: 042
     Dates: start: 20160310, end: 20160310

REACTIONS (2)
  - Syringe issue [None]
  - Device malfunction [None]

NARRATIVE: CASE EVENT DATE: 20160310
